FAERS Safety Report 9564629 (Version 3)
Quarter: 2013Q4

REPORT INFORMATION
  Report Type: Spontaneous
  Country: US (occurrence: US)
  Receive Date: 20130930
  Receipt Date: 20131127
  Transmission Date: 20140711
  Serious: No
  Sender: FDA-Public Use
  Company Number: US-PFIZER INC-2013278079

PATIENT
  Age: 57 Year
  Sex: Female

DRUGS (1)
  1. SUTENT [Suspect]
     Indication: RENAL CANCER
     Dosage: 50 MG, CYCLIC (2 WEEKS ON/ 2 WEEKS OFF)
     Route: 048
     Dates: start: 20121201, end: 20130812

REACTIONS (2)
  - Disease progression [Unknown]
  - Renal cancer [Unknown]
